FAERS Safety Report 7506538-2 (Version None)
Quarter: 2011Q2

REPORT INFORMATION
  Report Type: 
  Country: None (occurrence: None)
  Receive Date: 20110526
  Receipt Date: 20110524
  Transmission Date: 20111010
  Serious: Yes (Hospitalization)
  Sender: FDA-Public Use
  Company Number: IT-MERCK-1105ITA00041

PATIENT
  Age: 79 Year
  Sex: Male

DRUGS (8)
  1. RAMIPRIL [Concomitant]
     Route: 065
  2. LORMETAZEPAM [Concomitant]
     Route: 065
  3. LEVOFLOXACIN [Suspect]
     Indication: RESPIRATORY TRACT INFECTION
     Route: 048
     Dates: start: 20100314, end: 20100325
  4. PRIMAXIN [Suspect]
     Indication: RESPIRATORY TRACT INFECTION
     Route: 042
     Dates: start: 20100325, end: 20100408
  5. NITROGLYCERIN [Concomitant]
     Route: 065
  6. FUROSEMIDE [Concomitant]
     Route: 065
  7. TEICOPLANIN [Suspect]
     Indication: RESPIRATORY TRACT INFECTION
     Route: 042
     Dates: start: 20100313, end: 20100323
  8. EPOETIN BETA [Concomitant]
     Route: 065

REACTIONS (1)
  - GASTROENTERITIS CLOSTRIDIAL [None]
